FAERS Safety Report 17330380 (Version 1)
Quarter: 2020Q1

REPORT INFORMATION
  Report Type: Spontaneous
  Country: US (occurrence: US)
  Receive Date: 20200128
  Receipt Date: 20200128
  Transmission Date: 20200409
  Serious: No
  Sender: FDA-Public Use
  Company Number: US-SA-2020SA015136

PATIENT
  Age: 51 Year
  Sex: Male

DRUGS (21)
  1. AMOXICILLIN. [Concomitant]
     Active Substance: AMOXICILLIN
  2. QVAR [Concomitant]
     Active Substance: BECLOMETHASONE DIPROPIONATE
  3. TRINTELLIX [Concomitant]
     Active Substance: VORTIOXETINE HYDROBROMIDE
  4. CLARITHROMYCIN. [Concomitant]
     Active Substance: CLARITHROMYCIN
  5. MONTELUKAST [Concomitant]
     Active Substance: MONTELUKAST SODIUM
  6. NASONEX [Concomitant]
     Active Substance: MOMETASONE FUROATE
  7. DUPIXENT [Suspect]
     Active Substance: DUPILUMAB
     Indication: ASTHMA
     Dosage: 300 MG, QOW
     Route: 058
     Dates: start: 20190702
  8. CLARITINE [Concomitant]
     Active Substance: LORATADINE
  9. DULERA [Concomitant]
     Active Substance: FORMOTEROL FUMARATE DIHYDRATE\MOMETASONE FUROATE
  10. MELATONIN [Concomitant]
     Active Substance: MELATONIN
  11. MOMETASONE [Concomitant]
     Active Substance: MOMETASONE
  12. XOPENEX [Concomitant]
     Active Substance: LEVALBUTEROL HYDROCHLORIDE
  13. ADDERALL [Concomitant]
     Active Substance: AMPHETAMINE ASPARTATE\AMPHETAMINE SULFATE\DEXTROAMPHETAMINE SACCHARATE\DEXTROAMPHETAMINE SULFATE
  14. EPIPEN JR [Concomitant]
     Active Substance: EPINEPHRINE
  15. SIMVASTATIN. [Concomitant]
     Active Substance: SIMVASTATIN
  16. METFORMIN [Concomitant]
     Active Substance: METFORMIN HYDROCHLORIDE
  17. AMPHETAMINIL [Concomitant]
  18. BUPROPION. [Concomitant]
     Active Substance: BUPROPION
  19. DILTIAZEM XR [Concomitant]
     Active Substance: DILTIAZEM
  20. CLONAZEPAM. [Concomitant]
     Active Substance: CLONAZEPAM
  21. LOSARTAN. [Concomitant]
     Active Substance: LOSARTAN

REACTIONS (2)
  - Sinusitis [Not Recovered/Not Resolved]
  - Product use issue [Unknown]
